FAERS Safety Report 22350868 (Version 1)
Quarter: 2023Q2

REPORT INFORMATION
  Report Type: Spontaneous
  Country: DE (occurrence: DE)
  Receive Date: 20230522
  Receipt Date: 20230522
  Transmission Date: 20230721
  Serious: Yes (Other)
  Sender: FDA-Public Use
  Company Number: DE-UCBSA-2022034879

PATIENT
  Age: 17 Year
  Sex: Female
  Weight: 59.3 kg

DRUGS (2)
  1. BRIVIACT [Suspect]
     Active Substance: BRIVARACETAM
     Indication: Product used for unknown indication
     Dosage: 50 MILLIGRAM, 2X/DAY (BID)
     Route: 048
     Dates: start: 20220219
  2. LAMOTRIGINE [Concomitant]
     Active Substance: LAMOTRIGINE
     Indication: Epilepsy
     Dosage: 200 MILLIGRAM, 2X/DAY (BID)
     Route: 048
     Dates: start: 20210212

REACTIONS (8)
  - Meconium in amniotic fluid [Recovered/Resolved]
  - Pregnancy on contraceptive [Unknown]
  - Hypothyroidism [Not Recovered/Not Resolved]
  - Caesarean section [Unknown]
  - Pre-eclampsia [Recovered/Resolved]
  - Pain [Unknown]
  - Maternal exposure during pregnancy [Unknown]
  - Maternal exposure during breast feeding [Unknown]

NARRATIVE: CASE EVENT DATE: 20221230
